FAERS Safety Report 4654525-4 (Version None)
Quarter: 2005Q2

REPORT INFORMATION
  Report Type: 
  Country: None (occurrence: None)
  Receive Date: 20050503
  Receipt Date: 20050503
  Transmission Date: 20051028
  Serious: Yes (Disabling)
  Sender: FDA-Public Use
  Company Number: None

PATIENT
  Sex: Female
  Weight: 90.7194 kg

DRUGS (1)
  1. ENBREL [Suspect]
     Indication: PSORIATIC ARTHROPATHY
     Dosage: 50 MG 2XWEEK SUBCUTANEO
     Route: 058
     Dates: start: 20030115, end: 20030710

REACTIONS (4)
  - DRUG EFFECT DECREASED [None]
  - INFECTION [None]
  - OSTEOMYELITIS CHRONIC [None]
  - OSTEONECROSIS [None]
